FAERS Safety Report 10301527 (Version 2)
Quarter: 2014Q4

REPORT INFORMATION
  Report Type: Spontaneous
  Country: DK (occurrence: DK)
  Receive Date: 20140714
  Receipt Date: 20141226
  Transmission Date: 20150528
  Serious: Yes (Life-Threatening, Hospitalization)
  Sender: FDA-Public Use
  Company Number: DK-SA-2014SA088900

PATIENT
  Age: 84 Year
  Sex: Female

DRUGS (12)
  1. FURIX [Concomitant]
     Active Substance: FUROSEMIDE
     Indication: DIURETIC THERAPY
     Dosage: STRENGTH: 40 MG
     Route: 048
     Dates: start: 20121001
  2. CODEINE PHOSPHATE [Concomitant]
     Active Substance: CODEINE PHOSPHATE
     Indication: PAIN
     Dosage: STRENGTH: 25 MG
     Route: 048
     Dates: start: 20140527
  3. METOPROLOL SUCCINATE. [Concomitant]
     Active Substance: METOPROLOL SUCCINATE
     Indication: HYPERTENSION
     Dosage: STRENGTH: 50 MG
     Route: 048
     Dates: start: 20130122
  4. CALCIUM SODIUM LACTATE/ERGOCALCIFEROL/CALCIUM PHOSPHATE [Concomitant]
     Route: 048
     Dates: start: 20131022
  5. AMARYL [Suspect]
     Active Substance: GLIMEPIRIDE
     Indication: DIABETES MELLITUS
     Dosage: STYRKE: 2 MG
     Route: 048
     Dates: start: 20140522, end: 20140602
  6. GALVUS [Suspect]
     Active Substance: VILDAGLIPTIN
     Indication: DIABETES MELLITUS
     Dosage: STYRKE: 50 MG
     Route: 048
     Dates: start: 20130122, end: 20140602
  7. COLCHICINE. [Concomitant]
     Active Substance: COLCHICINE
     Dates: start: 20130522
  8. COZAAR [Concomitant]
     Active Substance: LOSARTAN POTASSIUM
     Indication: HYPERTENSION
     Dosage: STRENGTH: 50 MG
     Route: 048
     Dates: start: 20130606
  9. MAREVAN [Concomitant]
     Active Substance: WARFARIN SODIUM
     Indication: ANTICOAGULANT THERAPY
     Dosage: STRENGTH: 2.5MG?DOSAGE: AFTER SCHEDULE
     Route: 048
     Dates: start: 20130122
  10. PARACETAMOL [Concomitant]
     Active Substance: ACETAMINOPHEN
     Indication: PAIN
     Dosage: STRENGTH: 500 MG?DOSAGE: 1 G X 2 DAILY AND 1 G CAN BE TAKEN PN
     Route: 048
     Dates: start: 20140527
  11. ARANESP [Concomitant]
     Active Substance: DARBEPOETIN ALFA
     Indication: MYELODYSPLASTIC SYNDROME
     Route: 058
     Dates: start: 20130506
  12. DIGOXIN. [Concomitant]
     Active Substance: DIGOXIN
     Indication: CARDIAC DISORDER
     Dosage: STRENGTH: 62.5 MCG
     Route: 048
     Dates: start: 20130122

REACTIONS (7)
  - Depressed level of consciousness [Recovered/Resolved]
  - Hypoglycaemia [Recovered/Resolved]
  - Fatigue [Not Recovered/Not Resolved]
  - Fall [Not Recovered/Not Resolved]
  - Hypoglycaemic seizure [Recovered/Resolved]
  - Lethargy [Recovered/Resolved]
  - Somnolence [Recovered/Resolved]

NARRATIVE: CASE EVENT DATE: 201301
